FAERS Safety Report 7325227-0 (Version None)
Quarter: 2011Q1

REPORT INFORMATION
  Report Type: 
  Country: None (occurrence: None)
  Receive Date: 20110302
  Receipt Date: 20110225
  Transmission Date: 20110831
  Serious: No
  Sender: FDA-Public Use
  Company Number: US-PFIZER INC-2011041958

PATIENT
  Sex: Male
  Weight: 104.31 kg

DRUGS (1)
  1. ZITHROMAX [Suspect]
     Indication: UPPER RESPIRATORY TRACT INFECTION
     Dosage: 500 MG, DAILY
     Route: 048
     Dates: start: 20110215, end: 20110217

REACTIONS (3)
  - MUSCLE SPASMS [None]
  - PHOTOPHOBIA [None]
  - DIARRHOEA [None]
